FAERS Safety Report 22068271 (Version 2)
Quarter: 2023Q2

REPORT INFORMATION
  Report Type: Report from Study
  Country: US (occurrence: US)
  Receive Date: 20230307
  Receipt Date: 20230509
  Transmission Date: 20230722
  Serious: Yes (Other)
  Sender: FDA-Public Use
  Company Number: US-ABBVIE-4330191

PATIENT
  Sex: Male

DRUGS (3)
  1. VENCLEXTA [Suspect]
     Active Substance: VENETOCLAX
     Indication: Chronic lymphocytic leukaemia
     Route: 048
  2. VENCLEXTA [Suspect]
     Active Substance: VENETOCLAX
     Indication: Chronic lymphocytic leukaemia
     Dosage: FORM STRENGTH: 100 MG
     Route: 048
     Dates: start: 20230201
  3. CALQUENCE [Suspect]
     Active Substance: ACALABRUTINIB
     Indication: Product used for unknown indication
     Route: 065

REACTIONS (3)
  - Neoplasm malignant [Unknown]
  - Loss of personal independence in daily activities [Unknown]
  - Fatigue [Unknown]
